FAERS Safety Report 4485397-9 (Version None)
Quarter: 2004Q4

REPORT INFORMATION
  Report Type: 
  Country: None (occurrence: None)
  Receive Date: 20041025
  Receipt Date: 20041025
  Transmission Date: 20050328
  Serious: Yes (Other)
  Sender: FDA-Public Use
  Company Number: None

PATIENT
  Sex: Male
  Weight: 124.7392 kg

DRUGS (1)
  1. ZYVOX [Suspect]
     Dosage: 1 X 1
     Dates: start: 19990201, end: 20040601

REACTIONS (1)
  - BLINDNESS [None]
